FAERS Safety Report 9386619 (Version 1)
Quarter: 2013Q3

REPORT INFORMATION
  Report Type: Spontaneous
  Country: US (occurrence: None)
  Receive Date: 20130703
  Receipt Date: 20130703
  Transmission Date: 20140515
  Serious: Yes (Hospitalization)
  Sender: FDA-Public Use
  Company Number: None

PATIENT
  Age: 77 Year
  Sex: Male
  Weight: 79.9 kg

DRUGS (12)
  1. BORTEZOMIB [Suspect]
     Indication: NON-HODGKIN^S LYMPHOMA RECURRENT
     Dosage: D 1, 8, 15, 22
     Route: 042
     Dates: start: 20130312, end: 20130626
  2. TEMSIROLIMUS [Suspect]
     Indication: NON-HODGKIN^S LYMPHOMA RECURRENT
     Dosage: D1, 8, 15, 22
     Route: 042
     Dates: start: 20130312, end: 20130626
  3. ACETAMINOPHEN [Concomitant]
  4. IV CEFEPIME [Concomitant]
  5. SENOKOT [Concomitant]
  6. PANTOPRAZOLE [Concomitant]
  7. AYCLOVIR [Concomitant]
  8. HYDROCODONE-ACETAMINOPHEN [Concomitant]
  9. AMBIEN [Concomitant]
  10. IBUPROFEN [Concomitant]
  11. MIRALAX [Concomitant]
  12. ZOFRAN [Concomitant]

REACTIONS (10)
  - Pyrexia [None]
  - Tremor [None]
  - Lobar pneumonia [None]
  - Renal failure acute [None]
  - Abdominal pain [None]
  - Ureteral spasm [None]
  - Gastrointestinal pain [None]
  - Lymphatic obstruction [None]
  - Hydronephrosis [None]
  - Diastolic dysfunction [None]
